FAERS Safety Report 9920202 (Version 3)
Quarter: 2014Q1

REPORT INFORMATION
  Report Type: Spontaneous
  Country: US (occurrence: US)
  Receive Date: 20140224
  Receipt Date: 20140327
  Transmission Date: 20141002
  Serious: Yes (Hospitalization, Other)
  Sender: FDA-Public Use
  Company Number: CHPA2014US002849

PATIENT
  Age: 56 Year
  Sex: Female

DRUGS (8)
  1. PRIVATE LABEL [Suspect]
     Dosage: 14 MG, UNK
     Route: 062
     Dates: start: 201402, end: 201402
  2. CONTROL PLP [Suspect]
     Dosage: 21 MG, UNK
     Route: 062
  3. ANTICOAGULANTS [Concomitant]
     Route: 065
  4. ANTIHYPERTENSIVES [Concomitant]
     Route: 065
  5. ZOCOR [Concomitant]
     Route: 065
  6. ASPIRIN [Concomitant]
     Route: 065
  7. METOPROLOL [Concomitant]
     Route: 065
  8. DIOVAN [Concomitant]
     Route: 065

REACTIONS (10)
  - Dyspnoea [Recovering/Resolving]
  - Withdrawal syndrome [Recovering/Resolving]
  - Feeling abnormal [Not Recovered/Not Resolved]
  - Malaise [Unknown]
  - Screaming [Unknown]
  - Irritability [Recovering/Resolving]
  - Incorrect drug administration duration [Unknown]
  - Underdose [Unknown]
  - Drug effect increased [Unknown]
  - Panic attack [Recovering/Resolving]
